FAERS Safety Report 9991251 (Version 1)
Quarter: 2014Q1

REPORT INFORMATION
  Report Type: Report from Study
  Country: US (occurrence: US)
  Receive Date: 20140310
  Receipt Date: 20140310
  Transmission Date: 20141002
  Serious: No
  Sender: FDA-Public Use
  Company Number: US-ABBVIE-13P-163-1129644-00

PATIENT
  Age: 20 Year
  Sex: Female

DRUGS (8)
  1. HUMIRA [Suspect]
     Indication: JUVENILE IDIOPATHIC ARTHRITIS
     Dates: start: 20130731
  2. ARAVA [Concomitant]
     Indication: JUVENILE IDIOPATHIC ARTHRITIS
     Dosage: 20MG DAILY
     Route: 048
  3. MOBIC [Concomitant]
     Indication: JUVENILE IDIOPATHIC ARTHRITIS
     Dosage: 15MG DAILY
     Route: 048
  4. PRILOSEC [Concomitant]
     Indication: GASTROOESOPHAGEAL REFLUX DISEASE
     Dosage: 20MG DAILY
     Route: 048
  5. SINGULAIR [Concomitant]
     Indication: HYPERSENSITIVITY
     Dosage: 10MG DAILY
     Route: 048
  6. NASONEX [Concomitant]
     Indication: HYPERSENSITIVITY
     Dosage: ONE SPRAY IN EACH NOSTRIL DAILY
  7. GENERESS [Concomitant]
     Indication: CONTRACEPTION
     Dosage: DAILY
     Route: 048
  8. PROZAC [Concomitant]
     Indication: ANXIETY
     Dosage: 20MG DAILY
     Route: 048
     Dates: start: 20130802

REACTIONS (4)
  - Hypoglycaemia [Unknown]
  - Paraesthesia oral [Recovered/Resolved]
  - General physical health deterioration [Unknown]
  - Anxiety [Unknown]
